FAERS Safety Report 15081851 (Version 1)
Quarter: 2018Q3

REPORT INFORMATION
  Report Type: Spontaneous
  Country: FR (occurrence: FR)
  Receive Date: 20180628
  Receipt Date: 20180628
  Transmission Date: 20181010
  Serious: Yes (Hospitalization)
  Sender: FDA-Public Use
  Company Number: FR-CONCORDIA PHARMACEUTICALS INC.-E2B_00013062

PATIENT
  Age: 57 Year
  Sex: Female

DRUGS (12)
  1. PREDNISOLONE. [Suspect]
     Active Substance: PREDNISOLONE
     Indication: RENAL TRANSPLANT
     Route: 048
     Dates: start: 201206
  2. NIDREL 20 MG, COMPRIM? [Concomitant]
     Route: 048
  3. DEDROGYL 15 MG/ 100 ML, SOLUTION BUVABLE EN GOUTTES [Concomitant]
     Route: 048
  4. PRAVASTATINE SODIQUE [Concomitant]
     Active Substance: PRAVASTATIN SODIUM
     Route: 048
  5. FUROSEMIDE. [Concomitant]
     Active Substance: FUROSEMIDE
     Route: 048
  6. CELECTOL 200 MG, COMPRIM? PELLICUL? [Concomitant]
     Route: 048
  7. RAPAMUNE [Suspect]
     Active Substance: SIROLIMUS
     Indication: RENAL TRANSPLANT
     Route: 048
     Dates: start: 201206, end: 201804
  8. APROVEL 150 MG, COMPRIM? [Concomitant]
     Active Substance: IRBESARTAN
     Route: 048
  9. NOVONORM 0,5 MG, COMPRIM? [Concomitant]
     Active Substance: REPAGLINIDE
     Route: 048
  10. ADVAGRAF [Suspect]
     Active Substance: TACROLIMUS
     Indication: RENAL TRANSPLANT
     Route: 048
     Dates: start: 201206, end: 201804
  11. ALDACTONE [Concomitant]
     Active Substance: SPIRONOLACTONE
     Route: 048
  12. MEDIATENSYL 60 MG, G?LULE [Concomitant]
     Active Substance: URAPIDIL
     Route: 048

REACTIONS (3)
  - Metapneumovirus infection [Recovered/Resolved with Sequelae]
  - Septic shock [Recovered/Resolved with Sequelae]
  - Pneumonia pneumococcal [Recovered/Resolved with Sequelae]

NARRATIVE: CASE EVENT DATE: 20180405
